FAERS Safety Report 10599820 (Version 3)
Quarter: 2015Q1

REPORT INFORMATION
  Report Type: Spontaneous
  Country: NO (occurrence: NO)
  Receive Date: 20141121
  Receipt Date: 20150102
  Transmission Date: 20150720
  Serious: Yes (Other)
  Sender: FDA-Public Use
  Company Number: NO-GILEAD-2014-0123262

PATIENT
  Age: 42 Year
  Sex: Female

DRUGS (7)
  1. SOVALDI [Suspect]
     Active Substance: SOFOSBUVIR
     Indication: CHRONIC HEPATITIS C
     Dosage: 400 MG, QD
     Route: 048
     Dates: start: 201409
  2. INSULIN [Concomitant]
     Active Substance: INSULIN NOS
     Route: 058
  3. SOVALDI [Interacting]
     Active Substance: SOFOSBUVIR
     Route: 048
  4. MAREVAN [Interacting]
     Active Substance: WARFARIN SODIUM
     Indication: HEART VALVE REPLACEMENT
     Dosage: ACCORDING TO SCHEME
     Route: 048
     Dates: start: 201003
  5. OLYSIO [Interacting]
     Active Substance: SIMEPREVIR
     Indication: CHRONIC HEPATITIS C
     Route: 048
     Dates: start: 20140910
  6. INSULIN [Concomitant]
     Active Substance: INSULIN NOS
     Route: 058
  7. INSULIN [Concomitant]
     Active Substance: INSULIN NOS
     Indication: DIABETES MELLITUS
     Route: 058

REACTIONS (1)
  - International normalised ratio decreased [Recovering/Resolving]

NARRATIVE: CASE EVENT DATE: 20141007
